FAERS Safety Report 7363563-2 (Version None)
Quarter: 2011Q1

REPORT INFORMATION
  Report Type: 
  Country: None (occurrence: None)
  Receive Date: 20110321
  Receipt Date: 20110317
  Transmission Date: 20110831
  Serious: Yes (Other)
  Sender: FDA-Public Use
  Company Number: JP-SANOFI-AVENTIS-2011SA016239

PATIENT

DRUGS (2)
  1. INTERFERON [Concomitant]
  2. ALLEGRA [Suspect]
     Route: 065
     Dates: start: 20110203

REACTIONS (1)
  - ANAEMIA [None]
